FAERS Safety Report 7950264-2 (Version None)
Quarter: 2011Q4

REPORT INFORMATION
  Report Type: 
  Country: None (occurrence: None)
  Receive Date: 20111130
  Receipt Date: 20111121
  Transmission Date: 20120403
  Serious: Yes (Hospitalization, Other)
  Sender: FDA-Public Use
  Company Number: US-BAYER-200928603NA

PATIENT
  Age: 27 Year
  Sex: Female
  Weight: 94 kg

DRUGS (78)
  1. YAZ [Suspect]
     Indication: ORAL CONTRACEPTION
     Route: 048
     Dates: start: 20070905
  2. LEXAPRO [Concomitant]
     Dosage: 10 MG, QD
     Route: 048
     Dates: start: 20050101
  3. TOPAMAX [Concomitant]
     Dosage: 200 MG, UNK
  4. CONCERTA [Concomitant]
     Dosage: 36 MG, QD
     Dates: start: 20070101
  5. AUGMENTIN [Concomitant]
     Dosage: UNK
     Dates: start: 20070101
  6. TIZANIDINE HCL [Concomitant]
     Dosage: UNK
     Dates: start: 20080101
  7. CIPRO [Concomitant]
     Dosage: UNK
     Dates: start: 20100101
  8. CEFZIL [Concomitant]
     Dosage: UNK
     Dates: start: 20100101
  9. ALBUTEROL [Concomitant]
     Indication: ASTHMA
     Dosage: UNK
     Dates: start: 20080101
  10. TOPAMAX [Concomitant]
     Indication: MOOD ALTERED
  11. CALCIUM [Concomitant]
     Dosage: UNK
     Dates: start: 20050101
  12. EXCEDRIN (MIGRAINE) [Concomitant]
     Dosage: UNK
     Dates: start: 20070101
  13. ZONEGRAN [Concomitant]
     Dosage: 100 MG, UNK
     Dates: start: 20100101
  14. ZANAFLEX [Concomitant]
     Dosage: 4 MG, PRN
  15. ALLERGY SHOTS [Concomitant]
     Dosage: UNK UNK, OW
  16. POTASSIUM CHLORIDE [Concomitant]
     Indication: HYPOKALAEMIA
     Dosage: 40 MEQ, QD
     Dates: end: 20100901
  17. IBUPROFEN [Concomitant]
     Dosage: 800 MG, UNK
  18. KENALOG [Concomitant]
     Indication: ARTHRALGIA
     Dosage: 40 MG, UNK
     Route: 030
     Dates: start: 20100622
  19. ENBREL [Concomitant]
     Dosage: 50 MG, UNK
     Route: 058
     Dates: start: 20050101
  20. LODINE XL [Concomitant]
     Dosage: UNK
     Dates: start: 20050101
  21. CYMBALTA [Concomitant]
     Dosage: 60 MG, UNK
     Dates: start: 20050101
  22. PLAQUENIL [Concomitant]
     Dosage: UNK
     Dates: start: 20070101
  23. ISONIAZID [Concomitant]
     Dosage: UNK
     Dates: start: 20080101
  24. OMEPRAZOLE [Concomitant]
     Dosage: UNK
     Dates: start: 20080101
  25. NEXIUM [Concomitant]
     Indication: GASTROOESOPHAGEAL REFLUX DISEASE
     Dosage: UNK
     Dates: start: 20080101
  26. INH [Concomitant]
     Indication: TUBERCULIN TEST POSITIVE
     Dosage: 300 MG, QD
  27. LORAZEPAM [Concomitant]
     Indication: ANXIETY
     Dosage: 1 MG, TID
  28. ROBAXIN [Concomitant]
     Indication: MUSCLE RELAXANT THERAPY
     Dosage: 750 MG, QID
     Dates: end: 20100907
  29. POTASSIUM CHLORIDE [Concomitant]
     Dosage: 40 MEQ, QD
  30. MARCAINE [Concomitant]
  31. DEPO-PROVERA [Concomitant]
     Dosage: UNK UNK, Q3MON
     Dates: start: 20050101
  32. ULTRAM [Concomitant]
     Dosage: 50 MG, TID
     Dates: start: 20060101
  33. HUMIRA [Concomitant]
     Dosage: UNK, Q2WK
     Dates: start: 20100101
  34. FLONASE [Concomitant]
     Dosage: UNK
     Dates: start: 20070101
  35. TOPAMAX [Concomitant]
     Indication: ANXIETY
     Dosage: UNK
     Dates: start: 20080801
  36. TRAMADOL HCL [Concomitant]
     Indication: ARTHRALGIA
     Dosage: 500 MG, UNK
     Dates: start: 20050101
  37. CALCIUM +VIT D [Concomitant]
     Indication: RHEUMATOID ARTHRITIS
     Dosage: UNK
     Dates: start: 20080101
  38. PREVACID [Concomitant]
     Dosage: 30 MG, BID
  39. PROBIOTICS [Concomitant]
     Dosage: UNK UNK, QD
  40. METHOTREXATE [Concomitant]
     Dosage: 0.6 ML, OW
  41. LAMICTAL [Concomitant]
     Dosage: 200 MG, QD
     Route: 048
     Dates: start: 20060101, end: 20100101
  42. NORTREL 7/7/7 [Concomitant]
     Dosage: UNK
     Dates: start: 20060101
  43. HUMIRA [Concomitant]
     Indication: RHEUMATOID ARTHRITIS
     Dosage: UNK UNK, Q2WK
     Dates: start: 20080101
  44. MUCINEX [Concomitant]
     Dosage: UNK
     Dates: start: 20090101
  45. PHENAZOPYRIDINE HCL TAB [Concomitant]
     Dosage: UNK
     Dates: start: 20100101
  46. ZONISAMIDE [Concomitant]
     Indication: ARTHRALGIA
     Dosage: 100 MG, QD
     Dates: start: 20050101
  47. OMEGA 3 FATTY ACIDS [Concomitant]
     Dosage: UNK UNK, QD
  48. CARAFATE [Concomitant]
  49. SENNA S [Concomitant]
     Dosage: 2 U, HS
  50. VITAMIN D [Concomitant]
     Dosage: 1000 IU, QD
  51. OXYCODONE HCL AND ACETAMINOPHEN [Concomitant]
     Indication: PAIN
     Dosage: UNK UNK, QID
  52. AZITHROMYCIN [Concomitant]
     Dosage: UNK
     Dates: start: 20070101
  53. ZYRTEC [Concomitant]
     Dosage: UNK
     Dates: start: 20080101
  54. TOPROL-XL [Concomitant]
     Dosage: UNK
     Dates: start: 20080101
  55. TOPAMAX [Concomitant]
     Indication: ATTENTION DEFICIT/HYPERACTIVITY DISORDER
  56. LORAZEPAM [Concomitant]
     Indication: ATTENTION DEFICIT/HYPERACTIVITY DISORDER
  57. MELOXICAM [Concomitant]
  58. PERCOCET [Concomitant]
     Indication: PAIN
     Dosage: UNK UNK, PRN
  59. VOLTAREN [Concomitant]
     Dosage: UNK UNK, PRN
     Route: 061
  60. KENALOG [Concomitant]
     Indication: BACK PAIN
     Dosage: 40 MG, UNK
     Route: 008
     Dates: start: 20100804
  61. METHOTREXATE [Concomitant]
     Indication: RHEUMATOID ARTHRITIS
     Dosage: 2.5 MG, QD
     Route: 048
     Dates: start: 20010101
  62. PREDNISONE TAB [Concomitant]
     Dosage: 7.5 MG, QD
     Route: 048
     Dates: start: 20050101
  63. TOPAMAX [Concomitant]
     Dosage: 100 MG, QD
     Route: 048
     Dates: start: 20060101, end: 20100101
  64. HUMIRA [Concomitant]
     Dosage: 0.8 ML, UNK
  65. FLAGYL [Concomitant]
     Dosage: 500 MG, TID
     Route: 048
     Dates: start: 20100811
  66. CEFUROXIME AXETIL [Concomitant]
  67. ERYTHROMYCIN BENZOYL PEROXIDE SOLUTION [Concomitant]
     Dosage: UNK UNK, BID
  68. BENADRYL [Concomitant]
     Dosage: 25 MG, PRN
  69. CALCIUM W/VITAMIN D [CALCIUM CARBONATE,COLECALCIFEROL] [Concomitant]
     Dosage: UNK UNK, BID
  70. FOLIC ACID [Concomitant]
     Dosage: 1 MG, UNK
     Route: 048
     Dates: start: 20050101
  71. MULTI-VITAMINS [Concomitant]
     Dosage: UNK UNK, QD
     Dates: start: 20070101
  72. CEFTIN [Concomitant]
     Dosage: UNK
     Dates: start: 20070101
  73. DOXYCYCLINE [Concomitant]
     Dosage: UNK
     Dates: start: 20080101
  74. LORAZEPAM [Concomitant]
     Indication: MOOD ALTERED
  75. ABILIFY [Concomitant]
     Dosage: 5 MG, QD
  76. ASCORBIC ACID [Concomitant]
     Dosage: 250 MG, QD
  77. TYLENOL PM [Concomitant]
     Dosage: UNK UNK, HS
  78. KENALOG [Concomitant]
     Indication: RADICULAR PAIN

REACTIONS (14)
  - CHOLECYSTITIS CHRONIC [None]
  - NAUSEA [None]
  - ABDOMINAL PAIN [None]
  - CHOLESTEROSIS [None]
  - WEIGHT DECREASED [None]
  - FAECES DISCOLOURED [None]
  - VOMITING [None]
  - ABDOMINAL DISCOMFORT [None]
  - BILIARY DYSKINESIA [None]
  - DEEP VEIN THROMBOSIS [None]
  - ABDOMINAL PAIN UPPER [None]
  - DIARRHOEA [None]
  - HYPOKALAEMIA [None]
  - PAIN IN EXTREMITY [None]
